FAERS Safety Report 6829054-X (Version None)
Quarter: 2010Q3

REPORT INFORMATION
  Report Type: 
  Country: None (occurrence: None)
  Receive Date: 20100709
  Receipt Date: 20070227
  Transmission Date: 20110219
  Serious: No
  Sender: FDA-Public Use
  Company Number: US-PFIZER INC-2007013259

PATIENT
  Sex: Female
  Weight: 54.88 kg

DRUGS (1)
  1. CHANTIX [Suspect]
     Dates: start: 20070113, end: 20070101

REACTIONS (2)
  - DYSPEPSIA [None]
  - NAUSEA [None]
